FAERS Safety Report 8970981 (Version 1)
Quarter: 2012Q4

REPORT INFORMATION
  Report Type: 
  Country: US (occurrence: US)
  Receive Date: 20121218
  Receipt Date: 20121218
  Transmission Date: 20130627
  Serious: No
  Sender: FDA-Public Use
  Company Number: US-BRISTOL-MYERS SQUIBB COMPANY-17013822

PATIENT
  Age: 45 Year
  Sex: Female

DRUGS (7)
  1. ABILIFY [Suspect]
     Indication: MAJOR DEPRESSION
     Dosage: Initially 2mg, later 5mg and again 2mg
     Dates: start: 2012, end: 20120927
  2. TRAZODONE HCL [Suspect]
     Dosage: QHS
  3. CELEXA [Concomitant]
  4. KLONOPIN [Concomitant]
     Dosage: 1DF:1+1/2 mg QHS
  5. AMBIEN [Concomitant]
  6. PROTONIX [Concomitant]
  7. ZYRTEC [Concomitant]

REACTIONS (1)
  - Extrapyramidal disorder [Recovering/Resolving]
